FAERS Safety Report 8371863-2 (Version None)
Quarter: 2012Q2

REPORT INFORMATION
  Report Type: 
  Country: None (occurrence: None)
  Receive Date: 20120518
  Receipt Date: 20120514
  Transmission Date: 20120825
  Serious: Yes (Death, Other)
  Sender: FDA-Public Use
  Company Number: JP-ROCHE-1062451

PATIENT
  Age: 65 Year
  Sex: Male
  Weight: 64 kg

DRUGS (3)
  1. CARBOPLATIN [Suspect]
     Indication: LUNG ADENOCARCINOMA
     Dosage: AUC6
     Route: 041
     Dates: start: 20100301, end: 20100101
  2. PACLITAXEL [Suspect]
     Indication: LUNG ADENOCARCINOMA
     Route: 041
     Dates: start: 20100301, end: 20100101
  3. AVASTIN [Suspect]
     Indication: LUNG ADENOCARCINOMA
     Route: 041
     Dates: start: 20100501

REACTIONS (4)
  - NEUTROPHIL COUNT DECREASED [None]
  - DISEASE PROGRESSION [None]
  - WHITE BLOOD CELL COUNT DECREASED [None]
  - NEUROPATHY PERIPHERAL [None]
